FAERS Safety Report 8252801-X (Version None)
Quarter: 2012Q2

REPORT INFORMATION
  Report Type: 
  Country: None (occurrence: None)
  Receive Date: 20120402
  Receipt Date: 20111222
  Transmission Date: 20120825
  Serious: No
  Sender: FDA-Public Use
  Company Number: US-ABBOTT-11P-163-0886323-00

PATIENT
  Sex: Male
  Weight: 108.96 kg

DRUGS (10)
  1. LEVOTHYROXINE SODIUM [Concomitant]
     Indication: HYPOTHYROIDISM
  2. UNKNOWN MEDICATION [Concomitant]
     Indication: NEURALGIA
  3. ANDROGEL [Suspect]
     Indication: BLOOD TESTOSTERONE DECREASED
     Dosage: 4 PUMPS PER DAY
     Dates: start: 20111217
  4. GLIPIZIDE [Concomitant]
     Indication: DIABETES MELLITUS
  5. DOXAZOSIN MESYLATE [Concomitant]
     Indication: BLADDER DISORDER
  6. METHADONE HCL [Concomitant]
     Indication: PAIN
  7. ZETIA [Concomitant]
     Indication: BLOOD CHOLESTEROL INCREASED
  8. LISINOPRIL [Concomitant]
     Indication: HYPERTENSION
  9. PRAVASTATIN [Concomitant]
     Indication: BLOOD CHOLESTEROL INCREASED
  10. METFORMIN HCL [Concomitant]
     Indication: DIABETES MELLITUS

REACTIONS (2)
  - SKIN BURNING SENSATION [None]
  - HYPERHIDROSIS [None]
